FAERS Safety Report 25872251 (Version 3)
Quarter: 2025Q4

REPORT INFORMATION
  Report Type: Spontaneous
  Country: JP (occurrence: JP)
  Receive Date: 20251002
  Receipt Date: 20251112
  Transmission Date: 20260118
  Serious: Yes (Other)
  Sender: SANOFI AVENTIS
  Company Number: JP-SA-2025SA290953

PATIENT
  Age: 60 Year
  Sex: Male

DRUGS (17)
  1. DUPIXENT [Suspect]
     Active Substance: DUPILUMAB
     Indication: Dermatitis atopic
     Dosage: 300 MG, QOW
     Route: 058
     Dates: start: 20250822, end: 20250905
  2. DUPIXENT [Suspect]
     Active Substance: DUPILUMAB
     Dosage: 300 MG, 1X
     Route: 058
     Dates: start: 20250922, end: 20250922
  3. EPINASTINE [Concomitant]
     Active Substance: EPINASTINE HYDROCHLORIDE
     Indication: Dermatitis atopic
     Dosage: 20 MG, QD
     Route: 048
  4. EPINASTINE [Concomitant]
     Active Substance: EPINASTINE HYDROCHLORIDE
     Indication: Pyrexia
  5. EPINASTINE [Concomitant]
     Active Substance: EPINASTINE HYDROCHLORIDE
     Indication: Pruritus
  6. EPINASTINE [Concomitant]
     Active Substance: EPINASTINE HYDROCHLORIDE
     Indication: Rash maculo-papular
  7. EPINASTINE [Concomitant]
     Active Substance: EPINASTINE HYDROCHLORIDE
     Indication: Feeling hot
  8. EPINASTINE [Concomitant]
     Active Substance: EPINASTINE HYDROCHLORIDE
     Indication: Dyspnoea
  9. EPINASTINE [Concomitant]
     Active Substance: EPINASTINE HYDROCHLORIDE
     Indication: Erythema
  10. EPINASTINE [Concomitant]
     Active Substance: EPINASTINE HYDROCHLORIDE
     Indication: Rhinitis
  11. EPINASTINE [Concomitant]
     Active Substance: EPINASTINE HYDROCHLORIDE
     Indication: Malaise
  12. EPINASTINE [Concomitant]
     Active Substance: EPINASTINE HYDROCHLORIDE
     Indication: Pain
  13. EPINASTINE [Concomitant]
     Active Substance: EPINASTINE HYDROCHLORIDE
     Indication: Flushing
  14. EPINASTINE [Concomitant]
     Active Substance: EPINASTINE HYDROCHLORIDE
     Indication: Urticaria
  15. EPINASTINE [Concomitant]
     Active Substance: EPINASTINE HYDROCHLORIDE
     Indication: Angioedema
  16. EPINASTINE [Concomitant]
     Active Substance: EPINASTINE HYDROCHLORIDE
     Indication: Anxiety
  17. EPINASTINE [Concomitant]
     Active Substance: EPINASTINE HYDROCHLORIDE
     Indication: Insomnia

REACTIONS (15)
  - Dyspnoea [Recovered/Resolved]
  - Feeling hot [Recovered/Resolved]
  - Pyrexia [Recovered/Resolved]
  - Rash maculo-papular [Not Recovered/Not Resolved]
  - Pruritus [Not Recovered/Not Resolved]
  - Angioedema [Unknown]
  - Malaise [Unknown]
  - Pain [Unknown]
  - Flushing [Unknown]
  - Anxiety [Unknown]
  - Insomnia [Unknown]
  - Urticaria [Unknown]
  - Erythema [Recovering/Resolving]
  - Rhinitis [Unknown]
  - Inappropriate schedule of product administration [Unknown]

NARRATIVE: CASE EVENT DATE: 20250922
